FAERS Safety Report 4651407-9 (Version None)
Quarter: 2005Q2

REPORT INFORMATION
  Report Type: 
  Country: None (occurrence: None)
  Receive Date: 20050425
  Receipt Date: 20050408
  Transmission Date: 20051028
  Serious: Yes (Death)
  Sender: FDA-Public Use
  Company Number: US-SANOFI-SYNTHELABO-D01200404475

PATIENT
  Age: 70 Year
  Sex: Female
  Weight: 57.3 kg

DRUGS (21)
  1. RASBURICASE - SOLUTION - 0.2 MG/KG [Suspect]
     Indication: HYPERURICAEMIA
     Dosage: 0.2 MG/KG QD - INTRAVENOUS NOS
     Route: 042
     Dates: start: 20040921, end: 20040923
  2. RASBURICASE - SOLUTION - 0.2 MG/KG [Suspect]
     Indication: LEUKAEMIA
     Dosage: 0.2 MG/KG QD - INTRAVENOUS NOS
     Route: 042
     Dates: start: 20040921, end: 20040923
  3. RASBURICASE - SOLUTION - 0.2 MG/KG [Suspect]
     Indication: LYMPHOMA
     Dosage: 0.2 MG/KG QD - INTRAVENOUS NOS
     Route: 042
     Dates: start: 20040921, end: 20040923
  4. RASBURICASE - SOLUTION - 0.2 MG/KG [Suspect]
     Indication: TUMOUR LYSIS SYNDROME
     Dosage: 0.2 MG/KG QD - INTRAVENOUS NOS
     Route: 042
     Dates: start: 20040921, end: 20040923
  5. ALLOPURINOL [Suspect]
     Dosage: 300 MG QD - ORAL
     Route: 048
     Dates: start: 20040923, end: 20040925
  6. VANCOMYCIN [Concomitant]
  7. CEFTAZIDIME [Concomitant]
  8. NAFCILLIN SODIUM [Concomitant]
  9. ACYCLOVIR [Concomitant]
  10. ITRACONAZOLE [Concomitant]
  11. CIPROFLOXACIN [Concomitant]
  12. NEUPOGEN [Concomitant]
  13. CILASTATIN SODIU, IMIPENEM [Concomitant]
  14. CASPOFUNGIN ACETATE [Concomitant]
  15. GRANISETRON [Concomitant]
  16. DOCUSATE SODIUM [Concomitant]
  17. HALOPERIDOL [Concomitant]
  18. LORAZEPAM [Concomitant]
  19. METOCLOPRAMIDE [Concomitant]
  20. DIPHENHYDRAMINE HCL [Concomitant]
  21. PARACETAMOL [Concomitant]

REACTIONS (11)
  - CARDIAC ARREST [None]
  - CHOLELITHIASIS [None]
  - GASTROINTESTINAL HAEMORRHAGE [None]
  - HAEMATURIA [None]
  - HEPATIC FAILURE [None]
  - HEPATOTOXICITY [None]
  - PLATELET COUNT DECREASED [None]
  - PULMONARY HAEMORRHAGE [None]
  - REFUSAL OF TREATMENT BY RELATIVE [None]
  - RENAL FAILURE [None]
  - SEPSIS [None]
